FAERS Safety Report 11080409 (Version 1)
Quarter: 2015Q2

REPORT INFORMATION
  Report Type: Report from Study
  Country: US (occurrence: US)
  Receive Date: 20150430
  Receipt Date: 20150430
  Transmission Date: 20150821
  Serious: Yes (Other)
  Sender: FDA-Public Use
  Company Number: PHEH2015US008148

PATIENT
  Sex: Male

DRUGS (1)
  1. GLEEVEC [Suspect]
     Active Substance: IMATINIB MESYLATE
     Indication: CHRONIC MYELOID LEUKAEMIA
     Dosage: 400 MG, QD
     Route: 048

REACTIONS (15)
  - Skin lesion [Unknown]
  - Seasonal allergy [Unknown]
  - Hypermetropia [Unknown]
  - Muscle strain [Unknown]
  - Hypertension [Unknown]
  - Hyperlipidaemia [Unknown]
  - Arthritis [Unknown]
  - Dyspepsia [Unknown]
  - Presbyopia [Unknown]
  - Tobacco abuse [Unknown]
  - Glucose tolerance impaired [Unknown]
  - Eye pruritus [Unknown]
  - Vitreous detachment [Unknown]
  - Abdominal distension [Unknown]
  - Abdominal pain [Unknown]
